FAERS Safety Report 6115068-4 (Version None)
Quarter: 2009Q1

REPORT INFORMATION
  Report Type: 
  Country: None (occurrence: None)
  Receive Date: 20090313
  Receipt Date: 20090310
  Transmission Date: 20090719
  Serious: Yes (Other)
  Sender: FDA-Public Use
  Company Number: B0561320A

PATIENT
  Age: 7 Year
  Sex: Male
  Weight: 19.6 kg

DRUGS (6)
  1. RELENZA [Suspect]
     Indication: INFLUENZA
     Dosage: 10MG TWICE PER DAY
     Route: 055
     Dates: start: 20090211
  2. PL [Concomitant]
     Dosage: 6G PER DAY
     Route: 048
  3. ALESION [Concomitant]
     Route: 048
     Dates: start: 20090101
  4. KLARICID [Concomitant]
     Route: 048
     Dates: start: 20090201
  5. MUCODYNE [Concomitant]
     Route: 048
     Dates: start: 20090201
  6. CALONAL [Concomitant]
     Dosage: 20ML PER DAY
     Route: 048

REACTIONS (2)
  - DELIRIUM [None]
  - MUSCLE RIGIDITY [None]
